FAERS Safety Report 20902421 (Version 3)
Quarter: 2023Q1

REPORT INFORMATION
  Report Type: Report from Study
  Country: IN (occurrence: IN)
  Receive Date: 20220601
  Receipt Date: 20230117
  Transmission Date: 20230418
  Serious: Yes (Death)
  Sender: FDA-Public Use
  Company Number: IN-KARYOPHARM-2022KPT000527

PATIENT
  Age: 81 Year
  Sex: Female

DRUGS (10)
  1. SELINEXOR [Suspect]
     Active Substance: SELINEXOR
     Indication: Plasma cell myeloma
     Dosage: 60 MG, WEEKLY, 3 WEEKS ON-1 WEEK OFF
     Route: 048
     Dates: start: 20220328, end: 202204
  2. SELINEXOR [Suspect]
     Active Substance: SELINEXOR
     Dosage: 40 MG, WEEKLY, FOR 3 WEEKS ON AND 1 WEEK OFF
     Route: 048
     Dates: start: 20220425, end: 202205
  3. SELINEXOR [Suspect]
     Active Substance: SELINEXOR
     Dosage: 60 MG, WEEKLY, 3 WEEKS ON-1 WEEK OFF
     Route: 048
     Dates: start: 202205
  4. SELINEXOR [Suspect]
     Active Substance: SELINEXOR
     Dosage: 60 MG, EVERY OTHER WEEK
     Route: 048
     Dates: start: 20220613
  5. DECADRON [Concomitant]
     Active Substance: DEXAMETHASONE
     Indication: Plasma cell myeloma
     Dosage: 8 MG, 2X/WEEK
     Route: 048
     Dates: start: 20220328, end: 202204
  6. DECADRON [Concomitant]
     Active Substance: DEXAMETHASONE
     Dosage: 8 MG, WEEKLY
     Route: 048
     Dates: start: 20220425
  7. APREPITANT [Concomitant]
     Active Substance: APREPITANT
     Indication: Nausea
  8. ONDANSETRON [Concomitant]
     Active Substance: ONDANSETRON
     Indication: Nausea
  9. THALIDOMIDE [Concomitant]
     Active Substance: THALIDOMIDE
     Dosage: 50 MG
  10. CYCLOPHOSPHAMIDE [Concomitant]
     Active Substance: CYCLOPHOSPHAMIDE
     Dosage: 5 MG

REACTIONS (4)
  - Death [Fatal]
  - White blood cell count decreased [Unknown]
  - Nausea [Unknown]
  - Asthenia [Unknown]

NARRATIVE: CASE EVENT DATE: 20220401
